FAERS Safety Report 9733120 (Version 1)
Quarter: 2013Q4

REPORT INFORMATION
  Report Type: Spontaneous
  Country: FR (occurrence: FR)
  Receive Date: 20131205
  Receipt Date: 20131205
  Transmission Date: 20140711
  Serious: Yes (Hospitalization)
  Sender: FDA-Public Use
  Company Number: PHHY2013FR138546

PATIENT
  Age: 67 Year
  Sex: Female
  Weight: 57 kg

DRUGS (5)
  1. PACLITAXEL EBEWE [Suspect]
     Indication: BRONCHIAL NEOPLASM
     Dosage: 175 MG/M2, ONCE/SINGLE
     Route: 042
     Dates: start: 20110221, end: 20110221
  2. CARBOPLATIN [Concomitant]
     Dosage: UNK
     Dates: start: 20131121
  3. DEXAMETHASONE [Concomitant]
     Indication: PREMEDICATION
     Dosage: UNK
  4. ATARAX [Concomitant]
     Indication: PREMEDICATION
     Dosage: UNK
  5. AZANTAC [Concomitant]
     Indication: PREMEDICATION
     Dosage: UNK

REACTIONS (9)
  - Chest discomfort [Recovered/Resolved]
  - Oxygen saturation decreased [Recovered/Resolved]
  - Dyspnoea [Recovered/Resolved]
  - Arthralgia [Recovered/Resolved]
  - Abdominal pain upper [Recovered/Resolved]
  - Hypotension [Recovered/Resolved]
  - Myalgia [Recovered/Resolved]
  - Tachycardia [Recovered/Resolved]
  - Rash [Recovered/Resolved]
